FAERS Safety Report 21772679 (Version 1)
Quarter: 2022Q4

REPORT INFORMATION
  Report Type: Spontaneous
  Country: US (occurrence: US)
  Receive Date: 20221223
  Receipt Date: 20221223
  Transmission Date: 20230112
  Serious: No
  Sender: FDA-Public Use
  Company Number: US-ELI_LILLY_AND_COMPANY-US202212003815

PATIENT
  Sex: Female

DRUGS (5)
  1. MOUNJARO [Interacting]
     Active Substance: TIRZEPATIDE
     Indication: Glucose tolerance impaired
     Dosage: 2.5 MG, UNKNOWN
     Route: 065
  2. MOUNJARO [Interacting]
     Active Substance: TIRZEPATIDE
     Indication: Weight decreased
  3. MOUNJARO [Interacting]
     Active Substance: TIRZEPATIDE
     Indication: Glucose tolerance impaired
     Dosage: 5 MG, UNKNOWN
     Route: 065
  4. MOUNJARO [Interacting]
     Active Substance: TIRZEPATIDE
     Indication: Weight decreased
  5. ADDERALL [Interacting]
     Active Substance: AMPHETAMINE ASPARTATE\AMPHETAMINE SULFATE\DEXTROAMPHETAMINE SACCHARATE\DEXTROAMPHETAMINE SULFATE
     Indication: Attention deficit hyperactivity disorder
     Dosage: UNK, UNKNOWN
     Route: 065

REACTIONS (3)
  - Drug interaction [Unknown]
  - Fatigue [Unknown]
  - Off label use [Unknown]
